FAERS Safety Report 25525198 (Version 1)
Quarter: 2025Q3

REPORT INFORMATION
  Report Type: Spontaneous
  Country: US (occurrence: None)
  Receive Date: 20250705
  Receipt Date: 20250705
  Transmission Date: 20251021
  Serious: Yes (Other)
  Sender: FDA-CTU
  Company Number: None

PATIENT
  Age: 58 Year
  Sex: Female
  Weight: 129.6 kg

DRUGS (10)
  1. ZEPBOUND [Suspect]
     Active Substance: TIRZEPATIDE
     Route: 058
     Dates: start: 20250619, end: 20250627
  2. Amlodipine 5MG 1 daily [Concomitant]
  3. Losartan/Hctz 100-23 MG Tabs 1 daily [Concomitant]
  4. OMEGA 3 [Suspect]
     Active Substance: CAPSAICIN
  5. Coenzyme Q10 100mg [Concomitant]
  6. Vitamin D31000 iu [Concomitant]
  7. CALCIUM CARBONATE 500MG [Concomitant]
     Active Substance: CALCIUM CARBONATE
  8. Vitamin B12 2500mcg 2 daily 5000 mcb biotin Complete B complex - msm [Concomitant]
  9. BIOTIN [Concomitant]
     Active Substance: BIOTIN
  10. COMPLETE B COMPLEX [Concomitant]

REACTIONS (10)
  - Dizziness [None]
  - Syncope [None]
  - Gait inability [None]
  - Disorientation [None]
  - Dyspnoea [None]
  - Blood pressure increased [None]
  - Palpitations [None]
  - Feeling cold [None]
  - Feeling hot [None]
  - Impaired work ability [None]

NARRATIVE: CASE EVENT DATE: 20250626
